FAERS Safety Report 17460272 (Version 1)
Quarter: 2020Q1

REPORT INFORMATION
  Report Type: Spontaneous
  Country: US (occurrence: US)
  Receive Date: 20200226
  Receipt Date: 20200226
  Transmission Date: 20200409
  Serious: No
  Sender: FDA-Public Use
  Company Number: US-PFIZER INC-2020083255

PATIENT
  Age: 60 Year
  Sex: Female
  Weight: 46.27 kg

DRUGS (1)
  1. METHYLPREDNISOLONE. [Suspect]
     Active Substance: METHYLPREDNISOLONE
     Indication: MUSCULOSKELETAL DISCOMFORT
     Dosage: UNK
     Route: 048
     Dates: start: 202002

REACTIONS (3)
  - Blood pressure fluctuation [Not Recovered/Not Resolved]
  - Nausea [Unknown]
  - Feeling abnormal [Unknown]

NARRATIVE: CASE EVENT DATE: 20200224
